FAERS Safety Report 25013918 (Version 1)
Quarter: 2025Q1

REPORT INFORMATION
  Report Type: Spontaneous
  Country: US (occurrence: US)
  Receive Date: 20250226
  Receipt Date: 20250226
  Transmission Date: 20250409
  Serious: Yes (Disabling)
  Sender: AMGEN
  Company Number: US-AMGEN-USASP2025034761

PATIENT
  Age: 86 Year
  Sex: Female

DRUGS (3)
  1. EVENITY [Suspect]
     Active Substance: ROMOSOZUMAB-AQQG
     Indication: Osteoporosis
     Dosage: 210 MILLIGRAM, QMO
     Route: 058
  2. NEXLETOL [Concomitant]
     Active Substance: BEMPEDOIC ACID
  3. MELOXICAM [Concomitant]
     Active Substance: MELOXICAM

REACTIONS (6)
  - Loss of personal independence in daily activities [Unknown]
  - Back pain [Unknown]
  - Gingival pain [Unknown]
  - Tooth fracture [Unknown]
  - Muscle spasms [Unknown]
  - Pain in jaw [Unknown]
